FAERS Safety Report 9670891 (Version 2)
Quarter: 2013Q4

REPORT INFORMATION
  Report Type: Spontaneous
  Country: JP (occurrence: JP)
  Receive Date: 20131106
  Receipt Date: 20131202
  Transmission Date: 20140711
  Serious: No
  Sender: FDA-Public Use
  Company Number: PHHY2013JP125546

PATIENT
  Age: 52 Year
  Sex: Female

DRUGS (2)
  1. ONBREZ [Suspect]
     Indication: CHRONIC OBSTRUCTIVE PULMONARY DISEASE
     Dosage: 150 UG, DAILY
     Dates: start: 20131101, end: 20131101
  2. KIPRES [Concomitant]
     Dosage: UNK
     Route: 048

REACTIONS (1)
  - Hypoaesthesia [Recovered/Resolved]
